FAERS Safety Report 16431076 (Version 13)
Quarter: 2023Q4

REPORT INFORMATION
  Report Type: Spontaneous
  Country: US (occurrence: US)
  Receive Date: 20190614
  Receipt Date: 20231113
  Transmission Date: 20240110
  Serious: Yes (Hospitalization, Other)
  Sender: FDA-Public Use
  Company Number: US-PFIZER INC-2019252135

PATIENT
  Age: 58 Year
  Sex: Male
  Weight: 70 kg

DRUGS (3)
  1. XYNTHA [Suspect]
     Active Substance: ANTIHEMOPHILIC FACTOR, HUMAN RECOMBINANT RESIDUES 743-1636 DELETED
     Indication: Factor VIII deficiency
     Dosage: 2000 IU, (3 TIMES A WEEK )
  2. XYNTHA [Suspect]
     Active Substance: ANTIHEMOPHILIC FACTOR, HUMAN RECOMBINANT RESIDUES 743-1636 DELETED
     Dosage: 3000 IU, AS NEEDED (+/- 5%) EVERY 12-24 HOURS PRN BLEEDING AND PRIOR TO PROCEDURES AS DIRECTED
  3. XYNTHA [Suspect]
     Active Substance: ANTIHEMOPHILIC FACTOR, HUMAN RECOMBINANT RESIDUES 743-1636 DELETED
     Dosage: (3000 UNITS (+/-5% ) IVP 3X WEEK AND EVERY 12-24 HOURS AS NEEDED)
     Route: 042

REACTIONS (6)
  - Impaired work ability [Not Recovered/Not Resolved]
  - Accident [Not Recovered/Not Resolved]
  - COVID-19 [Unknown]
  - Muscular weakness [Unknown]
  - Haemorrhage [Unknown]
  - Injury [Unknown]

NARRATIVE: CASE EVENT DATE: 20120601
